FAERS Safety Report 12703190 (Version 2)
Quarter: 2016Q3

REPORT INFORMATION
  Report Type: Spontaneous
  Country: US (occurrence: US)
  Receive Date: 20160831
  Receipt Date: 20160905
  Transmission Date: 20161109
  Serious: Yes (Other)
  Sender: FDA-Public Use
  Company Number: US-HORIZON-RAV-0171-2016

PATIENT
  Age: 13 Year
  Sex: Female

DRUGS (2)
  1. PRO-PHREE [Concomitant]
  2. RAVICTI [Suspect]
     Active Substance: GLYCEROL PHENYLBUTYRATE
     Indication: ARGININOSUCCINATE SYNTHETASE DEFICIENCY
     Dosage: 7 ML TID
     Dates: start: 20140327

REACTIONS (3)
  - Pyrexia [Unknown]
  - Malaise [Unknown]
  - Hyperammonaemia [Unknown]
